FAERS Safety Report 19507517 (Version 1)
Quarter: 2021Q3

REPORT INFORMATION
  Report Type: Spontaneous
  Country: US (occurrence: US)
  Receive Date: 20210708
  Receipt Date: 20210708
  Transmission Date: 20211014
  Serious: No
  Sender: FDA-Public Use
  Company Number: US-SA-2021SA224211

PATIENT
  Sex: Female

DRUGS (1)
  1. DUPIXENT [Suspect]
     Active Substance: DUPILUMAB
     Indication: DERMATITIS ALLERGIC
     Dosage: 300 MG, QOW
     Route: 058
     Dates: start: 20210519, end: 20210616

REACTIONS (4)
  - Photophobia [Unknown]
  - Arthralgia [Unknown]
  - Hordeolum [Unknown]
  - Rash [Unknown]

NARRATIVE: CASE EVENT DATE: 2021
